FAERS Safety Report 8553000-4 (Version None)
Quarter: 2012Q3

REPORT INFORMATION
  Report Type: 
  Country: None (occurrence: None)
  Receive Date: 20120731
  Receipt Date: 20100929
  Transmission Date: 20120928
  Serious: Yes (Other)
  Sender: FDA-Public Use
  Company Number: US-BAYER-201022979NA

PATIENT
  Age: 31 Year
  Sex: Female
  Weight: 50 kg

DRUGS (13)
  1. BENADREX [Concomitant]
  2. PROTEIN SUPPLEMENTS [Concomitant]
     Dates: start: 20070601
  3. DROSPIRENONE AND ETHINYL ESTRADIOL [Suspect]
     Indication: ACNE
  4. YASMIN [Suspect]
     Indication: CONTRACEPTION
     Route: 048
     Dates: start: 20070101, end: 20080615
  5. IBUPROFEN [Concomitant]
     Route: 065
  6. CORGARD [Concomitant]
     Route: 065
     Dates: start: 20070101
  7. DROSPIRENONE AND ETHINYL ESTRADIOL [Suspect]
     Indication: CONTRACEPTION
     Route: 048
     Dates: start: 20070101, end: 20080615
  8. COMPAZINE [Concomitant]
  9. YASMIN [Suspect]
     Indication: ACNE
  10. YAZ [Suspect]
     Indication: PRODUCT USED FOR UNKNOWN INDICATION
     Route: 048
     Dates: start: 20070101, end: 20080615
  11. ASCORBIC ACID [Concomitant]
     Route: 065
  12. DIETARY SUPPLEMENTS [Concomitant]
     Dates: start: 20070601
  13. PRILOSEC [Concomitant]

REACTIONS (9)
  - ABDOMINAL PAIN LOWER [None]
  - NAUSEA [None]
  - VOMITING [None]
  - GALLBLADDER DISORDER [None]
  - WEIGHT DECREASED [None]
  - APHAGIA [None]
  - DYSPNOEA [None]
  - EYE PAIN [None]
  - POST CHOLECYSTECTOMY SYNDROME [None]
